FAERS Safety Report 19762432 (Version 1)
Quarter: 2021Q3

REPORT INFORMATION
  Report Type: Spontaneous
  Country: US (occurrence: US)
  Receive Date: 20210829
  Receipt Date: 20210829
  Transmission Date: 20211014
  Serious: No
  Sender: FDA-Public Use
  Company Number: None

PATIENT
  Age: 29 Year
  Sex: Female
  Weight: 56.25 kg

DRUGS (3)
  1. AIMOVIG [Suspect]
     Active Substance: ERENUMAB-AOOE
     Indication: MIGRAINE PROPHYLAXIS
     Dosage: ?          QUANTITY:1 INJECTION(S);OTHER FREQUENCY:28 DAYS;?
     Route: 030
     Dates: start: 20210727, end: 20210827
  2. MAGNESIUM [Concomitant]
     Active Substance: MAGNESIUM
  3. B2 [Concomitant]

REACTIONS (2)
  - Paralysis [None]
  - Muscle spasms [None]

NARRATIVE: CASE EVENT DATE: 20210727
